FAERS Safety Report 7380401-2 (Version None)
Quarter: 2011Q1

REPORT INFORMATION
  Report Type: 
  Country: None (occurrence: None)
  Receive Date: 20110329
  Receipt Date: 20110322
  Transmission Date: 20110831
  Serious: No
  Sender: FDA-Public Use
  Company Number: PE-ROCHE-766974

PATIENT
  Sex: Female

DRUGS (3)
  1. YASMIN [Concomitant]
     Indication: CONTRACEPTION
     Route: 065
  2. ISOTRETINOIN [Suspect]
     Route: 065
  3. AMIKACIN [Concomitant]
     Dosage: DOSAGE REGIMEN: BIS
     Route: 042
     Dates: start: 20110302, end: 20110307

REACTIONS (2)
  - NO ADVERSE EVENT [None]
  - PREGNANCY [None]
